FAERS Safety Report 7554738-8 (Version None)
Quarter: 2011Q2

REPORT INFORMATION
  Report Type: 
  Country: None (occurrence: None)
  Receive Date: 20110617
  Receipt Date: 20110609
  Transmission Date: 20111010
  Serious: Yes (Other)
  Sender: FDA-Public Use
  Company Number: PHHY2011GB50135

PATIENT
  Age: 73 Year
  Sex: Female

DRUGS (4)
  1. DERMOL SOL [Concomitant]
     Indication: SKIN DISORDER
     Route: 061
  2. FLUOROURACIL [Suspect]
     Indication: ACTINIC KERATOSIS
     Route: 061
  3. E45 [Concomitant]
  4. FLUOROURACIL [Suspect]
     Indication: SKIN LESION

REACTIONS (1)
  - HYPERAESTHESIA [None]
